FAERS Safety Report 7723995-7 (Version None)
Quarter: 2011Q3

REPORT INFORMATION
  Report Type: 
  Country: None (occurrence: None)
  Receive Date: 20110901
  Receipt Date: 20110826
  Transmission Date: 20111222
  Serious: Yes (Hospitalization)
  Sender: FDA-Public Use
  Company Number: US-GILEAD-2011-0042978

PATIENT
  Sex: Female

DRUGS (1)
  1. LETAIRIS [Suspect]
     Indication: PULMONARY HYPERTENSION
     Route: 048
     Dates: start: 20091215

REACTIONS (4)
  - RIGHT VENTRICULAR FAILURE [None]
  - UNEVALUABLE EVENT [None]
  - FLUID OVERLOAD [None]
  - OEDEMA [None]
